FAERS Safety Report 5926207-X (Version None)
Quarter: 2008Q4

REPORT INFORMATION
  Report Type: 
  Country: None (occurrence: None)
  Receive Date: 20081017
  Receipt Date: 20080926
  Transmission Date: 20090506
  Serious: Yes (Hospitalization)
  Sender: FDA-Public Use
  Company Number: ADE-0810102

PATIENT
  Sex: Female
  Weight: 52.6173 kg

DRUGS (10)
  1. ASCORBIC ACID INJ [Suspect]
     Indication: MINERAL SUPPLEMENTATION
     Dosage: 5 GM IV TIMES ONE DOSE
     Route: 042
     Dates: start: 20080926
  2. ASCORBIC ACID INJ [Suspect]
     Indication: VITAMIN SUPPLEMENTATION
     Dosage: 5 GM IV TIMES ONE DOSE
     Route: 042
     Dates: start: 20080926
  3. CALCIUM GLUCONATE [Suspect]
     Indication: MINERAL SUPPLEMENTATION
     Dosage: 15 ML IV TIMES ONE DOSE
     Route: 042
     Dates: start: 20080926
  4. CALCIUM GLUCONATE [Suspect]
     Indication: VITAMIN SUPPLEMENTATION
     Dosage: 15 ML IV TIMES ONE DOSE
     Route: 042
     Dates: start: 20080926
  5. ASCORBIC ACID [Concomitant]
  6. MAGNESIUM SULFATE [Concomitant]
  7. ZINC [Concomitant]
  8. CHROMIUM [Concomitant]
  9. SELENIUM [Concomitant]
  10. MAGNESIUM SULFATE [Concomitant]

REACTIONS (5)
  - DIARRHOEA [None]
  - INFUSION RELATED REACTION [None]
  - NAUSEA [None]
  - VOMITING [None]
  - WHITE BLOOD CELL COUNT DECREASED [None]
